FAERS Safety Report 5971400-3 (Version None)
Quarter: 2008Q4

REPORT INFORMATION
  Report Type: 
  Country: None (occurrence: None)
  Receive Date: 20081130
  Receipt Date: 20081125
  Transmission Date: 20090506
  Serious: Yes (Other)
  Sender: FDA-Public Use
  Company Number: GB-PFIZER INC-2008086296

PATIENT
  Sex: Female

DRUGS (1)
  1. LYRICA [Suspect]
     Indication: SOMATISATION DISORDER
     Route: 048

REACTIONS (6)
  - ANXIETY [None]
  - DARK CIRCLES UNDER EYES [None]
  - FEELING ABNORMAL [None]
  - MUSCULAR WEAKNESS [None]
  - SOMATISATION DISORDER [None]
  - VISION BLURRED [None]
